FAERS Safety Report 5030475-9 (Version None)
Quarter: 2006Q2

REPORT INFORMATION
  Report Type: 
  Country: None (occurrence: None)
  Receive Date: 20060620
  Receipt Date: 20060609
  Transmission Date: 20061013
  Serious: Yes (Death)
  Sender: FDA-Public Use
  Company Number: DE-BOEHRINGER INGELHEIM PHARMACEUTICALS, INC.-2006-DE-02992GD

PATIENT
  Age: 39 Year
  Sex: Male

DRUGS (10)
  1. NEVIRAPINE [Suspect]
     Indication: HIV INFECTION
     Dates: start: 20001101
  2. LOPINAVIR/RITONAVIR [Suspect]
     Indication: HIV INFECTION
     Dates: start: 20001101
  3. LAMIVUDINE [Suspect]
     Indication: HIV INFECTION
     Dates: start: 20001101
  4. STAVUDINE [Suspect]
     Indication: HIV INFECTION
     Dates: start: 20001101
  5. AMPRENAVIR [Suspect]
     Indication: HIV INFECTION
  6. EFAVIRENZ [Suspect]
     Indication: HIV INFECTION
  7. TENOFOVIR [Suspect]
     Indication: HIV INFECTION
  8. INDINAVIR [Suspect]
     Indication: HIV INFECTION
  9. FOSCARNET [Suspect]
     Indication: HIV INFECTION
     Route: 042
  10. SAQUINAVIR [Suspect]
     Indication: HIV INFECTION

REACTIONS (8)
  - BLOOD HIV RNA INCREASED [None]
  - COGNITIVE DISORDER [None]
  - CONVULSION [None]
  - DRUG EFFECT DECREASED [None]
  - EPSTEIN-BARR VIRAEMIA [None]
  - HERPES VIRUS INFECTION [None]
  - NON-HODGKIN'S LYMPHOMA [None]
  - VIRAL MUTATION IDENTIFIED [None]
